FAERS Safety Report 21090865 (Version 1)
Quarter: 2022Q3

REPORT INFORMATION
  Report Type: Spontaneous
  Country: US (occurrence: US)
  Receive Date: 20220716
  Receipt Date: 20220716
  Transmission Date: 20221026
  Serious: Yes (Hospitalization, Other)
  Sender: FDA-Public Use
  Company Number: US-UNITED THERAPEUTICS-UNT-2022-015438

PATIENT
  Age: 6 Year
  Sex: Male
  Weight: 20.6 kg

DRUGS (1)
  1. DINUTUXIMAB [Suspect]
     Active Substance: DINUTUXIMAB
     Indication: Neuroblastoma
     Dosage: UNK, CYCLICAL (CYCLE 1)
     Route: 041

REACTIONS (4)
  - Mental status changes [Unknown]
  - Muscular weakness [Unknown]
  - Respiratory failure [Unknown]
  - Myelitis transverse [Unknown]

NARRATIVE: CASE EVENT DATE: 20211206
